FAERS Safety Report 8829192 (Version 3)
Quarter: 2013Q2

REPORT INFORMATION
  Report Type: Report from Study
  Country: BR (occurrence: BR)
  Receive Date: 20121008
  Receipt Date: 20130627
  Transmission Date: 20140414
  Serious: Yes (Hospitalization, Other)
  Sender: FDA-Public Use
  Company Number: PHHY2012BR087586

PATIENT
  Sex: Female
  Weight: 76 kg

DRUGS (12)
  1. STALEVO [Suspect]
     Indication: PARKINSON^S DISEASE
     Dosage: 1 DF, DAILY
     Route: 048
  2. LOSARTAN [Concomitant]
     Indication: HYPERTENSION
     Dosage: 2 DF, DAILY
     Route: 048
  3. AMILORIDE HYDROCHLORIDE W/FUROSEMIDE [Concomitant]
     Dosage: 1 DF, UNK
     Route: 048
  4. ATENOLOL [Concomitant]
     Indication: HYPERTENSION
     Dosage: 3 DF, DAILY
     Route: 048
  5. ASPIRINA INFANTIL [Concomitant]
     Dosage: 1 DF, UNK
     Route: 048
  6. PROCIMAX [Concomitant]
     Indication: NERVOUSNESS
     Dosage: 1 DF, DAILY
     Route: 048
  7. AAS [Concomitant]
     Indication: COAGULOPATHY
     Dosage: 1 DF, DAILY
     Route: 048
  8. AAS [Concomitant]
     Indication: CEREBROVASCULAR ACCIDENT
  9. EPEZ [Concomitant]
     Indication: MENTAL DISORDER
     Dosage: 1 DF, DAILY
     Route: 048
  10. AMLODIPINE [Concomitant]
     Indication: HYPERTENSION
     Dosage: 1 DF, DAILY
     Route: 048
  11. ALDACTONE [Concomitant]
     Indication: OEDEMA PERIPHERAL
     Dosage: 1 DF, DAILY
     Route: 048
  12. ALDACTONE [Concomitant]
     Indication: OEDEMA PERIPHERAL

REACTIONS (16)
  - Hypertension [Not Recovered/Not Resolved]
  - Gait disturbance [Not Recovered/Not Resolved]
  - Thrombosis [Not Recovered/Not Resolved]
  - Blood pressure decreased [Recovered/Resolved]
  - Varicose vein [Not Recovered/Not Resolved]
  - Visual acuity reduced [Not Recovered/Not Resolved]
  - Swelling [Not Recovered/Not Resolved]
  - Scratch [Not Recovered/Not Resolved]
  - Feeling jittery [Recovered/Resolved]
  - Incorrect dose administered [Not Recovered/Not Resolved]
  - Tremor [Not Recovered/Not Resolved]
  - Dry mouth [Not Recovered/Not Resolved]
  - Malaise [Not Recovered/Not Resolved]
  - Fatigue [Not Recovered/Not Resolved]
  - Confusional state [Recovering/Resolving]
  - Local swelling [Unknown]
